FAERS Safety Report 7921783-X (Version None)
Quarter: 2011Q4

REPORT INFORMATION
  Report Type: 
  Country: None (occurrence: None)
  Receive Date: 20111117
  Receipt Date: 20111110
  Transmission Date: 20120403
  Serious: Yes (Hospitalization)
  Sender: FDA-Public Use
  Company Number: IE-GLAXOSMITHKLINE-B0762916A

PATIENT
  Sex: Male

DRUGS (2)
  1. UNKNOWN DRUG [Concomitant]
  2. DUTASTERIDE/TAMSULOSIN HYDROCHLORIDE [Suspect]
     Indication: BENIGN PROSTATIC HYPERPLASIA
     Dates: start: 20110801, end: 20110901

REACTIONS (1)
  - ORTHOSTATIC HYPOTENSION [None]
